FAERS Safety Report 24984191 (Version 1)
Quarter: 2025Q1

REPORT INFORMATION
  Report Type: Other
  Country: CN (occurrence: CN)
  Receive Date: 20250219
  Receipt Date: 20250219
  Transmission Date: 20250408
  Serious: Yes (Death, Hospitalization)
  Sender: ANI
  Company Number: CN-ANIPHARMA-015608

PATIENT
  Age: 50 Year
  Sex: Female

DRUGS (8)
  1. LEUCOVORIN CALCIUM [Suspect]
     Active Substance: LEUCOVORIN CALCIUM
     Indication: Toxicity to various agents
  2. OMEPRAZOLE [Concomitant]
     Active Substance: OMEPRAZOLE
     Indication: Prophylaxis against gastrointestinal ulcer
  3. SOMATOSTATIN [Concomitant]
     Active Substance: SOMATOSTATIN
     Indication: Prophylaxis against gastrointestinal ulcer
  4. THROMBOPOIETIN [Concomitant]
     Active Substance: THROMBOPOIETIN
     Indication: Thrombocytopenia
  5. immune-globulin [Concomitant]
     Indication: Immune system disorder
  6. MEROPENEM [Concomitant]
     Active Substance: MEROPENEM
     Indication: Infection
  7. TEICOPLANIN [Concomitant]
     Active Substance: TEICOPLANIN
     Indication: Infection
  8. VORICONAZOLE [Concomitant]
     Active Substance: VORICONAZOLE
     Indication: Infection

REACTIONS (1)
  - Drug ineffective [Fatal]
